FAERS Safety Report 4433196-6 (Version None)
Quarter: 2004Q3

REPORT INFORMATION
  Report Type: 
  Country: None (occurrence: None)
  Receive Date: 20040826
  Receipt Date: 20040816
  Transmission Date: 20050211
  Serious: Yes (Death, Other)
  Sender: FDA-Public Use
  Company Number: FR-BRISTOL-MYERS SQUIBB COMPANY-12672150

PATIENT
  Age: 73 Year
  Sex: Female

DRUGS (6)
  1. COUMADIN [Suspect]
     Route: 048
     Dates: start: 20030101, end: 20040316
  2. DUPHALAC [Concomitant]
  3. ACETAMINOPHEN [Concomitant]
  4. ZYPREXA [Concomitant]
  5. DEROXAT [Concomitant]
  6. VALIUM [Concomitant]

REACTIONS (8)
  - ACCIDENTAL OVERDOSE [None]
  - BLEEDING TIME PROLONGED [None]
  - CEREBRAL HAEMORRHAGE [None]
  - COMA [None]
  - EPILEPSY [None]
  - INTERNATIONAL NORMALISED RATIO ABNORMAL [None]
  - MEDICATION ERROR [None]
  - PROTHROMBIN LEVEL DECREASED [None]
